FAERS Safety Report 12472581 (Version 1)
Quarter: 2016Q2

REPORT INFORMATION
  Report Type: Spontaneous
  Country: SG (occurrence: SG)
  Receive Date: 20160616
  Receipt Date: 20160616
  Transmission Date: 20160815
  Serious: Yes (Other)
  Sender: FDA-Public Use
  Company Number: SG-IGSA-GTI004287

PATIENT
  Sex: Male

DRUGS (2)
  1. HYPERRHO [Suspect]
     Active Substance: HUMAN RHO(D) IMMUNE GLOBULIN
     Route: 030
     Dates: start: 20160521, end: 20160521
  2. HYPERHEP B S/D [Suspect]
     Active Substance: HUMAN HEPATITIS B VIRUS IMMUNE GLOBULIN
     Indication: ANTIVIRAL PROPHYLAXIS
     Route: 030
     Dates: start: 20160521, end: 20160521

REACTIONS (2)
  - Haemoglobin decreased [Recovered/Resolved]
  - Wrong drug administered [Recovered/Resolved]

NARRATIVE: CASE EVENT DATE: 201605
